FAERS Safety Report 8697631 (Version 3)
Quarter: 2012Q4

REPORT INFORMATION
  Report Type: Spontaneous
  Country: DE (occurrence: None)
  Receive Date: 20120717
  Receipt Date: 20120828
  Transmission Date: 20130627
  Serious: Yes (Hospitalization)
  Sender: FDA-Public Use
  Company Number: ACO_31051_2012

PATIENT
  Age: 50 Year
  Sex: Female

DRUGS (3)
  1. DALFAMPRIDINE [Suspect]
     Indication: MULTIPLE SCLEROSIS
     Dosage: 10 MG, BID, ORAL
     Route: 048
     Dates: start: 20120120
  2. TOLPERISONE (TOLPERISONE) [Concomitant]
  3. TIZANIDINE HYDROCHLORIDE [Concomitant]

REACTIONS (1)
  - Pneumonia [None]
